FAERS Safety Report 9189872 (Version 1)
Quarter: 2013Q1

REPORT INFORMATION
  Report Type: Spontaneous
  Country: ES (occurrence: ES)
  Receive Date: 20130326
  Receipt Date: 20130326
  Transmission Date: 20140127
  Serious: Yes (Hospitalization)
  Sender: FDA-Public Use
  Company Number: ES-ELI_LILLY_AND_COMPANY-ES201303007320

PATIENT
  Sex: Female

DRUGS (1)
  1. FORSTEO [Suspect]
     Indication: OSTEOPOROSIS
     Dosage: 20 UG, UNKNOWN
     Route: 058
     Dates: start: 20080605, end: 20080831

REACTIONS (5)
  - Myocardial infarction [Recovered/Resolved]
  - Heart rate increased [Unknown]
  - Bone pain [Unknown]
  - Gait disturbance [Unknown]
  - Tension [Unknown]
